FAERS Safety Report 18694154 (Version 2)
Quarter: 2021Q1

REPORT INFORMATION
  Report Type: Spontaneous
  Country: JP (occurrence: JP)
  Receive Date: 20210104
  Receipt Date: 20210127
  Transmission Date: 20210419
  Serious: Yes (Death, Life-Threatening, Hospitalization)
  Sender: FDA-Public Use
  Company Number: JP-BAXTER-2020BAX026867

PATIENT
  Age: 74 Year
  Sex: Female
  Weight: 38 kg

DRUGS (10)
  1. REGUNEAL LCA [Suspect]
     Active Substance: CALCIUM CHLORIDE\DEXTROSE MONOHYDRATE\HYDROCHLORIC ACID\MAGNESIUM CHLORIDE\SODIUM BICARBONATE\SODIUM CHLORIDE\SODIUM HYDROXIDE\SODIUM LACTATE
     Indication: END STAGE RENAL DISEASE
     Dosage: TWICE DAILY
     Route: 033
     Dates: start: 201811, end: 20201210
  2. FUROSEMIDE. [Concomitant]
     Active Substance: FUROSEMIDE
     Indication: OEDEMA DUE TO RENAL DISEASE
     Dosage: PO/TWICE A DAY
     Route: 048
     Dates: end: 20201210
  3. ARTIST [Concomitant]
     Active Substance: CARVEDILOL
     Indication: HYPERTENSION
     Dosage: PO/ONCE A DAY
     Route: 048
     Dates: end: 20201210
  4. FLUITRAN [Concomitant]
     Active Substance: TRICHLORMETHIAZIDE
     Indication: OEDEMA DUE TO RENAL DISEASE
     Dosage: PO/ONCE A DAY
     Route: 048
     Dates: end: 20201210
  5. SPIRONOLACTONE. [Concomitant]
     Active Substance: SPIRONOLACTONE
     Indication: OEDEMA DUE TO RENAL DISEASE
     Dosage: ONCE A DAY
     Route: 048
     Dates: end: 20201210
  6. REGPARA [Concomitant]
     Active Substance: CINACALCET HYDROCHLORIDE
     Indication: HYPERPARATHYROIDISM SECONDARY
     Dosage: PO/ONCE A DAY
     Route: 048
     Dates: end: 20201210
  7. CALBLOCK [Concomitant]
     Active Substance: AZELNIDIPINE
     Indication: HYPERTENSION
     Dosage: PO/ONCE A DAY
     Route: 048
     Dates: end: 20201210
  8. EXTRANEAL [Suspect]
     Active Substance: CALCIUM CHLORIDE\ICODEXTRIN\MAGNESIUM CHLORIDE\SODIUM CHLORIDE\SODIUM LACTATE
     Indication: END STAGE RENAL DISEASE
     Dosage: ONCE DAILY
     Route: 033
     Dates: start: 201503, end: 20201210
  9. REGUNEAL LCA [Suspect]
     Active Substance: CALCIUM CHLORIDE\DEXTROSE MONOHYDRATE\HYDROCHLORIC ACID\MAGNESIUM CHLORIDE\SODIUM BICARBONATE\SODIUM CHLORIDE\SODIUM HYDROXIDE\SODIUM LACTATE
     Indication: END STAGE RENAL DISEASE
     Dosage: ONCE DAILY
     Route: 033
     Dates: start: 201907, end: 20201210
  10. CALTAN [Concomitant]
     Active Substance: CALCIUM CARBONATE
     Indication: HYPERPHOSPHATAEMIA
     Dosage: PO/TWICE A DAY
     Route: 048
     Dates: end: 20201210

REACTIONS (2)
  - Pneumonia aspiration [Fatal]
  - Ileus [Fatal]

NARRATIVE: CASE EVENT DATE: 20201211
